FAERS Safety Report 9090675 (Version 1)
Quarter: 2013Q1

REPORT INFORMATION
  Report Type: Spontaneous
  Country: US (occurrence: US)
  Receive Date: 20130131
  Receipt Date: 20130131
  Transmission Date: 20140127
  Serious: No
  Sender: FDA-Public Use
  Company Number: US-ASTRAZENECA-2013SE06041

PATIENT
  Age: 69 Year
  Sex: Female
  Weight: 82.6 kg

DRUGS (8)
  1. OMEPRAZOLE [Suspect]
     Indication: GASTROOESOPHAGEAL REFLUX DISEASE
     Route: 048
     Dates: start: 2011
  2. AMLODIPINE [Concomitant]
     Indication: HYPERTENSION
  3. PREMARIN [Concomitant]
     Indication: MENOPAUSE
  4. DICLOFENAC [Concomitant]
     Indication: ARTHRITIS
  5. METFORMIN [Concomitant]
     Indication: DIABETES MELLITUS
  6. GLIPIZIDE [Concomitant]
     Indication: DIABETES MELLITUS
  7. HYDROCODONE [Concomitant]
     Indication: PAIN
  8. MAGNESIUM [Concomitant]
     Indication: MINERAL SUPPLEMENTATION

REACTIONS (2)
  - Joint injury [Recovering/Resolving]
  - Musculoskeletal pain [Unknown]
